FAERS Safety Report 7623739-3 (Version None)
Quarter: 2011Q3

REPORT INFORMATION
  Report Type: 
  Country: None (occurrence: None)
  Receive Date: 20110720
  Receipt Date: 20110714
  Transmission Date: 20111222
  Serious: Yes (Other)
  Sender: FDA-Public Use
  Company Number: US-GLAXOSMITHKLINE-A0937230A

PATIENT
  Age: 23 Year

DRUGS (1)
  1. LAMICTAL [Suspect]
     Indication: PRODUCT USED FOR UNKNOWN INDICATION
     Route: 065

REACTIONS (5)
  - RASH [None]
  - HEPATIC ENZYME ABNORMAL [None]
  - PYREXIA [None]
  - LYMPHADENOPATHY [None]
  - MUCOSAL INFLAMMATION [None]
